FAERS Safety Report 23813461 (Version 3)
Quarter: 2024Q2

REPORT INFORMATION
  Report Type: Report from Study
  Country: US (occurrence: US)
  Receive Date: 20240503
  Receipt Date: 20240510
  Transmission Date: 20240715
  Serious: Yes (Hospitalization)
  Sender: FDA-Public Use
  Company Number: US-Eisai-EC-2024-164871

PATIENT
  Age: 50 Year
  Sex: Female
  Weight: 113.6 kg

DRUGS (19)
  1. LENVIMA [Suspect]
     Active Substance: LENVATINIB
     Indication: Endometrial cancer
     Route: 048
     Dates: start: 20230129, end: 202403
  2. LENVIMA [Suspect]
     Active Substance: LENVATINIB
     Route: 048
     Dates: start: 202403
  3. METOPROLOL SUCCINATE [Concomitant]
     Active Substance: METOPROLOL SUCCINATE
  4. SPIRONOLACTONE [Concomitant]
     Active Substance: SPIRONOLACTONE
  5. TYLENOL [Concomitant]
     Active Substance: ACETAMINOPHEN
  6. NORCO [Concomitant]
     Active Substance: ACETAMINOPHEN\HYDROCODONE BITARTRATE
  7. DEXAMETHASONE [Concomitant]
     Active Substance: DEXAMETHASONE
  8. PROCHLORPERAZINE EDISYLATE [Concomitant]
     Active Substance: PROCHLORPERAZINE EDISYLATE
  9. ONDANSETRON HYDROCHLORIDE [Concomitant]
     Active Substance: ONDANSETRON HYDROCHLORIDE
  10. MAGNESIUM [Concomitant]
     Active Substance: MAGNESIUM
  11. LEVOTHYROXINE SODIUM [Concomitant]
     Active Substance: LEVOTHYROXINE SODIUM
  12. KEYTRUDA [Concomitant]
     Active Substance: PEMBROLIZUMAB
     Dosage: DOSE STRENGTH:100MG/4ML VIAL. DOSE AND FREQUENCY UNKNOWN.
     Route: 040
  13. LYRICA [Concomitant]
     Active Substance: PREGABALIN
  14. XYZAL [Concomitant]
     Active Substance: LEVOCETIRIZINE DIHYDROCHLORIDE
  15. LOSARTAN POTASSIUM [Concomitant]
     Active Substance: LOSARTAN POTASSIUM
  16. ATIVAN [Concomitant]
     Active Substance: LORAZEPAM
  17. ELIQUIS [Concomitant]
     Active Substance: APIXABAN
  18. ASPIRIN [Concomitant]
     Active Substance: ASPIRIN
  19. PLAVIX [Concomitant]
     Active Substance: CLOPIDOGREL BISULFATE

REACTIONS (7)
  - Thrombosis [Recovering/Resolving]
  - Peripheral swelling [Recovering/Resolving]
  - Capillary disorder [Recovering/Resolving]
  - Skin exfoliation [Recovering/Resolving]
  - Chromaturia [Recovering/Resolving]
  - Diarrhoea [Recovering/Resolving]
  - Gait disturbance [Recovering/Resolving]

NARRATIVE: CASE EVENT DATE: 20240301
